FAERS Safety Report 5638228-5 (Version None)
Quarter: 2008Q1

REPORT INFORMATION
  Report Type: 
  Country: None (occurrence: None)
  Receive Date: 20080226
  Receipt Date: 20080221
  Transmission Date: 20080703
  Serious: Yes (Death)
  Sender: FDA-Public Use
  Company Number: US-BRISTOL-MYERS SQUIBB COMPANY-14086243

PATIENT
  Age: 7 Decade
  Sex: Male
  Weight: 113 kg

DRUGS (1)
  1. DEFINITY [Suspect]
     Dosage: 10 CC DILUTED IN NORMAL SALINE.
     Dates: start: 20070101

REACTIONS (2)
  - COMA [None]
  - DEATH [None]
